FAERS Safety Report 7516685-7 (Version None)
Quarter: 2011Q2

REPORT INFORMATION
  Report Type: 
  Country: None (occurrence: None)
  Receive Date: 20110523
  Receipt Date: 20110314
  Transmission Date: 20111010
  Serious: Yes (Other)
  Sender: FDA-Public Use
  Company Number: USA/USA/11/0017238

PATIENT
  Age: 31 Year
  Sex: Female
  Weight: 80.2867 kg

DRUGS (4)
  1. LAMOTRIGINE [Suspect]
     Indication: SIMPLE PARTIAL SEIZURES
     Dosage: 100 MG, 3 IN 1 D, ORAL ; 100 MG, 2 TABLETS TWICE A DAY, ORAL ; 100 MG, 1 D, ORAL
     Route: 048
     Dates: start: 20110101, end: 20110101
  2. LAMOTRIGINE [Suspect]
     Indication: SIMPLE PARTIAL SEIZURES
     Dosage: 100 MG, 3 IN 1 D, ORAL ; 100 MG, 2 TABLETS TWICE A DAY, ORAL ; 100 MG, 1 D, ORAL
     Route: 048
     Dates: start: 20110101, end: 20110120
  3. LAMOTRIGINE [Suspect]
     Indication: SIMPLE PARTIAL SEIZURES
     Dosage: 100 MG, 3 IN 1 D, ORAL ; 100 MG, 2 TABLETS TWICE A DAY, ORAL ; 100 MG, 1 D, ORAL
     Route: 048
     Dates: start: 20110101, end: 20110101
  4. ATIVAN [Concomitant]

REACTIONS (5)
  - ANXIETY [None]
  - PRODUCT FORMULATION ISSUE [None]
  - SELF-INJURIOUS IDEATION [None]
  - PSYCHOTIC DISORDER [None]
  - SUICIDAL IDEATION [None]
